FAERS Safety Report 26110150 (Version 1)
Quarter: 2025Q4

REPORT INFORMATION
  Report Type: Spontaneous
  Country: EU (occurrence: EU)
  Receive Date: 20251201
  Receipt Date: 20251201
  Transmission Date: 20260117
  Serious: Yes (Other)
  Sender: JOHNSON AND JOHNSON
  Company Number: EU-SAMSUNG BIOEPIS-SB-2025-38977

PATIENT
  Age: 15 Year
  Sex: Female

DRUGS (3)
  1. INFLIXIMAB [Suspect]
     Active Substance: INFLIXIMAB
     Indication: Pyoderma gangrenosum
  2. USTEKINUMAB [Suspect]
     Active Substance: USTEKINUMAB
     Indication: Pyoderma gangrenosum
  3. ADALIMUMAB [Suspect]
     Active Substance: ADALIMUMAB
     Indication: Pyoderma gangrenosum

REACTIONS (4)
  - Pyoderma gangrenosum [Unknown]
  - Condition aggravated [Unknown]
  - Off label use [Unknown]
  - Drug ineffective for unapproved indication [Unknown]
